FAERS Safety Report 18165247 (Version 2)
Quarter: 2020Q3

REPORT INFORMATION
  Report Type: Spontaneous
  Country: IR (occurrence: IR)
  Receive Date: 20200818
  Receipt Date: 20200908
  Transmission Date: 20201103
  Serious: Yes (Other)
  Sender: FDA-Public Use
  Company Number: IR-SA-2020SA216896

PATIENT

DRUGS (4)
  1. TADALAFIL. [Concomitant]
     Active Substance: TADALAFIL
     Dosage: 1 DF, HS
     Route: 048
     Dates: start: 20200806
  2. MULTIVITAMINUM [Concomitant]
     Active Substance: VITAMINS
     Dosage: 1 DF, QD
     Route: 048
     Dates: start: 20200731
  3. ATORVASTATIN [Concomitant]
     Active Substance: ATORVASTATIN
     Dosage: 20 MG
     Route: 065
     Dates: start: 20200731
  4. OMNIC [Suspect]
     Active Substance: TAMSULOSIN HYDROCHLORIDE
     Indication: BENIGN PROSTATIC HYPERPLASIA
     Dosage: UNK UNK, QD
     Route: 048
     Dates: start: 20200731, end: 20200809

REACTIONS (6)
  - Epistaxis [Recovered/Resolved]
  - Back pain [Recovered/Resolved]
  - Lethargy [Recovered/Resolved]
  - Tachycardia [Recovered/Resolved]
  - Orthostatic hypotension [Recovered/Resolved]
  - Muscle spasms [Recovered/Resolved]

NARRATIVE: CASE EVENT DATE: 20200805
